FAERS Safety Report 19888937 (Version 1)
Quarter: 2021Q3

REPORT INFORMATION
  Report Type: Spontaneous
  Country: JP (occurrence: JP)
  Receive Date: 20210928
  Receipt Date: 20210928
  Transmission Date: 20211014
  Serious: Yes (Other)
  Sender: FDA-Public Use
  Company Number: NVSJ2020JP007125

PATIENT
  Age: 79 Year
  Sex: Male

DRUGS (3)
  1. BEOVU [Suspect]
     Active Substance: BROLUCIZUMAB-DBLL
     Dosage: 6 MG
     Route: 031
     Dates: start: 20201107, end: 20201107
  2. EYLEA [Suspect]
     Active Substance: AFLIBERCEPT
     Indication: AGE-RELATED MACULAR DEGENERATION
     Dosage: UNK, LEFT EYE, 10 TIMES IN TOTAL
     Route: 031
     Dates: end: 20200518
  3. BEOVU [Suspect]
     Active Substance: BROLUCIZUMAB-DBLL
     Indication: AGE-RELATED MACULAR DEGENERATION
     Dosage: 6 MG
     Route: 031
     Dates: start: 20200706, end: 20200706

REACTIONS (7)
  - Anterior chamber inflammation [Recovered/Resolved]
  - Anterior chamber cell [Recovering/Resolving]
  - Keratic precipitates [Recovered/Resolved]
  - Iritis [Unknown]
  - Keratic precipitates [Recovered/Resolved]
  - Iritis [Recovered/Resolved]
  - Conjunctival hyperaemia [Recovered/Resolved]

NARRATIVE: CASE EVENT DATE: 20200718
